FAERS Safety Report 8029705-0 (Version None)
Quarter: 2012Q1

REPORT INFORMATION
  Report Type: 
  Country: None (occurrence: None)
  Receive Date: 20120109
  Receipt Date: 20120104
  Transmission Date: 20120608
  Serious: Yes (Hospitalization, Other)
  Sender: FDA-Public Use
  Company Number: GB-PFIZER INC-2005085084

PATIENT
  Age: 31 Year
  Sex: Male
  Weight: 107 kg

DRUGS (12)
  1. LEVOTHYROXINE SODIUM [Concomitant]
     Indication: PRIMARY HYPOTHYROIDISM
  2. TESTOSTERONE [Concomitant]
     Indication: BLOOD FOLLICLE STIMULATING HORMONE DECREASED
  3. TESTOSTERONE [Concomitant]
     Indication: HYPOGONADISM MALE
  4. SOMATROPIN [Suspect]
     Indication: HYPOPITUITARISM
     Dosage: 0.2MG AND 0.3MG ON ALTERNATE DAYS,DAILY
     Route: 058
     Dates: start: 19970729, end: 20050503
  5. HYDROCORTISONE [Concomitant]
     Dosage: UNK MG, UNK
  6. PRASTERONE [Concomitant]
     Indication: HYPOGONADISM MALE
  7. DESMOPRESSIN [Concomitant]
     Indication: BLOOD ANTIDIURETIC HORMONE DECREASED
     Dosage: UNK
     Route: 048
     Dates: start: 19970301
  8. HYDROCORTISONE [Concomitant]
     Indication: BLOOD CORTICOTROPHIN DECREASED
     Dosage: 20MG 06:00AM; 10MG AT 12:00NOON AND 5MG AT 18:00 EVERY DAY
     Route: 048
     Dates: start: 19950501
  9. LEVOTHYROXINE SODIUM [Concomitant]
     Indication: BLOOD THYROID STIMULATING HORMONE DECREASED
     Dosage: DAILY
     Route: 048
     Dates: start: 19960501, end: 20090119
  10. TESTOSTERONE [Concomitant]
     Indication: LUTEINISING HORMONE DEFICIENCY
     Dosage: EVERY 4 WEEKS
     Route: 030
     Dates: start: 19951001, end: 20090501
  11. PRASTERONE [Concomitant]
     Indication: LUTEINISING HORMONE DEFICIENCY
     Dosage: 50MG; DAILY
     Route: 048
     Dates: start: 20040401
  12. PRASTERONE [Concomitant]
     Indication: FOLLICLE-STIMULATING HORMONE DEFICIENCY

REACTIONS (2)
  - PITUITARY TUMOUR BENIGN [None]
  - NERVOUS SYSTEM DISORDER [None]
